FAERS Safety Report 5103230-9 (Version None)
Quarter: 2006Q3

REPORT INFORMATION
  Report Type: 
  Country: None (occurrence: None)
  Receive Date: 20060913
  Receipt Date: 20060823
  Transmission Date: 20061208
  Serious: Yes (Life-Threatening, Hospitalization)
  Sender: FDA-Public Use
  Company Number: NL-JNJFOC-20060801259

PATIENT
  Sex: Male

DRUGS (4)
  1. REMICADE [Suspect]
     Route: 042
  2. REMICADE [Suspect]
     Route: 042
  3. REMICADE [Suspect]
     Indication: ANKYLOSING SPONDYLITIS
     Route: 042
  4. BISOPROLOL FUMARATE [Concomitant]
     Route: 048

REACTIONS (8)
  - DYSARTHRIA [None]
  - GAIT DISTURBANCE [None]
  - GASTRIC BANDING [None]
  - HYPERTENSION [None]
  - HYPOAESTHESIA [None]
  - LEGIONELLA INFECTION [None]
  - LUNG DISORDER [None]
  - PNEUMONIA [None]
